FAERS Safety Report 9167929 (Version 1)
Quarter: 2013Q1

REPORT INFORMATION
  Report Type: Spontaneous
  Country: BR (occurrence: None)
  Receive Date: 20130304
  Receipt Date: 20130304
  Transmission Date: 20140127
  Serious: Yes (Other)
  Sender: FDA-Public Use
  Company Number: 0220599

PATIENT
  Sex: Female

DRUGS (1)
  1. TACHOSIL [Suspect]
     Indication: SURGERY
     Route: 061

REACTIONS (1)
  - Medication residue present [None]
